FAERS Safety Report 6539307-0 (Version None)
Quarter: 2010Q1

REPORT INFORMATION
  Report Type: 
  Country: None (occurrence: None)
  Receive Date: 20100115
  Receipt Date: 20091022
  Transmission Date: 20100710
  Serious: Yes (Other)
  Sender: FDA-Public Use
  Company Number: US-SANOFI-AVENTIS-200916693US

PATIENT
  Sex: Female

DRUGS (4)
  1. OPTICLICK [Suspect]
     Dates: start: 20060101
  2. INSULIN GLARGINE [Suspect]
     Dosage: DOSE AS USED: 44-60 UNITS
     Route: 058
     Dates: start: 20050101
  3. NOVOLOG [Concomitant]
     Dosage: DOSE AS USED: UNK
  4. METFORMIN [Concomitant]
     Dosage: DOSE AS USED: UNK

REACTIONS (3)
  - DIABETIC RETINOPATHY [None]
  - INJURY ASSOCIATED WITH DEVICE [None]
  - VISUAL ACUITY REDUCED [None]
